FAERS Safety Report 13014507 (Version 1)
Quarter: 2016Q4

REPORT INFORMATION
  Report Type: Spontaneous
  Country: US (occurrence: US)
  Receive Date: 20161209
  Receipt Date: 20161209
  Transmission Date: 20170207
  Serious: Yes (Other)
  Sender: FDA-Public Use
  Company Number: US-TEVA-719334USA

PATIENT
  Sex: Female

DRUGS (1)
  1. COPAXONE [Suspect]
     Active Substance: GLATIRAMER ACETATE
     Indication: MULTIPLE SCLEROSIS
     Dosage: UNKNOWN FORM STRENGTH
     Route: 065

REACTIONS (6)
  - Motor dysfunction [Unknown]
  - Injection site atrophy [Unknown]
  - Speech disorder [Unknown]
  - Multiple sclerosis [Recovered/Resolved]
  - Peripheral venous disease [Recovered/Resolved]
  - Visual impairment [Unknown]
